FAERS Safety Report 21713997 (Version 1)
Quarter: 2022Q4

REPORT INFORMATION
  Report Type: Spontaneous
  Country: US (occurrence: None)
  Receive Date: 20221209
  Receipt Date: 20221209
  Transmission Date: 20230113
  Serious: Yes (Hospitalization)
  Sender: FDA-Public Use
  Company Number: None

PATIENT
  Age: 84 Year
  Sex: Male
  Weight: 65.77 kg

DRUGS (2)
  1. CEFEPIME HYDROCHLORIDE [Suspect]
     Active Substance: CEFEPIME HYDROCHLORIDE
     Indication: Diabetic foot infection
     Dosage: 2 GM BID IV?
     Route: 042
     Dates: start: 20220706, end: 20220710
  2. CEFEPIME HYDROCHLORIDE [Suspect]
     Active Substance: CEFEPIME HYDROCHLORIDE
     Indication: Osteomyelitis

REACTIONS (7)
  - Mental status changes [None]
  - Confusional state [None]
  - Myoclonus [None]
  - Disorientation [None]
  - Muscle twitching [None]
  - Speech disorder [None]
  - Neurotoxicity [None]

NARRATIVE: CASE EVENT DATE: 20220710
